FAERS Safety Report 7893569 (Version 2)
Quarter: 2012Q4

REPORT INFORMATION
  Report Type: 
  Country: US (occurrence: US)
  Receive Date: 20110411
  Receipt Date: 20121113
  Transmission Date: 20130627
  Serious: Yes (Hospitalization)
  Sender: FDA-Public Use
  Company Number: US-US-EMD SERONO, INC.-7047850

PATIENT
  Age: 64 None
  Sex: Male

DRUGS (5)
  1. REBIF [Suspect]
     Indication: MULTIPLE SCLEROSIS
     Route: 058
     Dates: start: 20091214, end: 201103
  2. REBIF [Suspect]
     Dates: start: 20110404
  3. UNSPECIFIED INGREDIENT [Suspect]
     Indication: MUSCULOSKELETAL PAIN
  4. ADVIL [Concomitant]
     Indication: MUSCULOSKELETAL PAIN
  5. ASPIRIN [Concomitant]
     Indication: MUSCULOSKELETAL PAIN

REACTIONS (3)
  - Intestinal ulcer perforation [Recovering/Resolving]
  - Multiple sclerosis relapse [Unknown]
  - Diarrhoea [Unknown]
